FAERS Safety Report 5447182-0 (Version None)
Quarter: 2007Q3

REPORT INFORMATION
  Report Type: 
  Country: None (occurrence: None)
  Receive Date: 20070910
  Receipt Date: 20070905
  Transmission Date: 20080115
  Serious: Yes (Life-Threatening, Hospitalization)
  Sender: FDA-Public Use
  Company Number: PHRM2007FR02129

PATIENT
  Age: 65 Year
  Sex: Female
  Weight: 74 kg

DRUGS (19)
  1. DEXAMETHASONE 0.5MG TAB [Concomitant]
     Indication: ACUTE LYMPHOCYTIC LEUKAEMIA
     Dates: start: 20070612, end: 20070613
  2. VINCRISTINE [Concomitant]
     Dates: start: 20070612, end: 20070613
  3. VINCRISTINE [Concomitant]
     Dates: start: 20070620, end: 20070621
  4. VINCRISTINE [Concomitant]
     Dates: start: 20070626, end: 20070627
  5. VINCRISTINE [Concomitant]
     Dates: start: 20070703, end: 20070703
  6. METHOTREXATE [Concomitant]
     Indication: ACUTE LYMPHOCYTIC LEUKAEMIA
  7. HYDROCORTISONE HYDROGEN SUCCINATE [Concomitant]
  8. CYTARABINE [Concomitant]
     Indication: ACUTE LYMPHOCYTIC LEUKAEMIA
     Dates: start: 20070614, end: 20070614
  9. CYTARABINE [Concomitant]
     Dates: start: 20070625, end: 20070625
  10. CYTARABINE [Concomitant]
     Dates: start: 20070710, end: 20070710
  11. CYTARABINE [Concomitant]
     Dates: start: 20070723, end: 20070723
  12. LOVENOX [Suspect]
     Indication: DEEP VEIN THROMBOSIS
     Dosage: 0.7 ML PER DAY
     Dates: start: 20070703
  13. PURINETHOL [Concomitant]
     Indication: ACUTE LYMPHOCYTIC LEUKAEMIA
     Dosage: 60 MG/M2 DAILY
  14. BACTRIM [Concomitant]
     Indication: PROPHYLAXIS
  15. TRIFLUCAN [Suspect]
     Indication: PROPHYLAXIS
  16. ZELITREX                                /DEN/ [Concomitant]
     Indication: PROPHYLAXIS
  17. GLUCOPHAGE [Concomitant]
     Indication: DIABETES MELLITUS
  18. INSULIN [Concomitant]
     Indication: DIABETES MELLITUS
  19. GLEEVEC [Suspect]
     Indication: ACUTE LYMPHOCYTIC LEUKAEMIA
     Dosage: 800 MG DAILY
     Route: 048
     Dates: start: 20070612

REACTIONS (9)
  - ANAEMIA [None]
  - DEEP VEIN THROMBOSIS [None]
  - DRUG INTERACTION [None]
  - FATIGUE [None]
  - HAEMOGLOBIN DECREASED [None]
  - HEADACHE [None]
  - INTERNATIONAL NORMALISED RATIO INCREASED [None]
  - SUBDURAL HAEMATOMA [None]
  - SUBDURAL HAEMATOMA EVACUATION [None]
